FAERS Safety Report 8353274-9 (Version None)
Quarter: 2012Q2

REPORT INFORMATION
  Report Type: 
  Country: None (occurrence: None)
  Receive Date: 20120511
  Receipt Date: 20120501
  Transmission Date: 20120825
  Serious: Yes (Hospitalization, Other)
  Sender: FDA-Public Use
  Company Number: DK-JNJFOC-20120400329

PATIENT
  Sex: Male
  Weight: 97 kg

DRUGS (17)
  1. DOXORUBICIN HYDROCHLORIDE [Suspect]
     Indication: DIFFUSE LARGE B-CELL LYMPHOMA
     Route: 042
     Dates: start: 20110426, end: 20110426
  2. CYCLOPHOSPHAMIDE [Suspect]
     Indication: DIFFUSE LARGE B-CELL LYMPHOMA
     Route: 042
     Dates: start: 20110325
  3. VALACYCLOVIR HYDROCHLORIDE [Concomitant]
     Indication: PROPHYLAXIS
     Route: 048
     Dates: start: 20110218, end: 20110401
  4. VINCRISTINE [Suspect]
     Route: 042
     Dates: start: 20110426, end: 20110426
  5. RITUXIMAB [Concomitant]
     Indication: DIFFUSE LARGE B-CELL LYMPHOMA
     Route: 042
     Dates: start: 20110325
  6. PREDNISOLONE [Concomitant]
     Indication: DIFFUSE LARGE B-CELL LYMPHOMA
     Route: 048
     Dates: start: 20110426, end: 20110426
  7. VINCRISTINE [Suspect]
     Indication: DIFFUSE LARGE B-CELL LYMPHOMA
     Route: 042
     Dates: start: 20110325
  8. PREDNISOLONE [Concomitant]
     Route: 048
     Dates: start: 20110430, end: 20110430
  9. RITUXIMAB [Concomitant]
     Route: 042
     Dates: start: 20110426, end: 20110426
  10. PINEX JUNIOR [Concomitant]
     Indication: ANALGESIC THERAPY
     Route: 048
     Dates: start: 20100305
  11. DOXORUBICIN HYDROCHLORIDE [Suspect]
     Route: 042
     Dates: start: 20110325
  12. NEULASTA [Concomitant]
     Route: 058
     Dates: start: 20110427, end: 20110427
  13. OMEPRAZOLE [Concomitant]
     Indication: DYSPEPSIA
     Route: 048
     Dates: start: 19950615
  14. SULPHAMETHIZOLE [Concomitant]
     Indication: PROPHYLAXIS
     Route: 048
     Dates: start: 20110218, end: 20110401
  15. CYCLOPHOSPHAMIDE [Suspect]
     Route: 042
     Dates: start: 20110426, end: 20110426
  16. NEULASTA [Concomitant]
     Indication: DIFFUSE LARGE B-CELL LYMPHOMA
     Route: 058
     Dates: start: 20110326
  17. PREDNISOLONE [Concomitant]
     Route: 048
     Dates: start: 20110325, end: 20110329

REACTIONS (10)
  - PALLOR [None]
  - DIARRHOEA [None]
  - VIRAL INFECTION [None]
  - DIZZINESS [None]
  - MALAISE [None]
  - DYSPNOEA EXERTIONAL [None]
  - ANAEMIA [None]
  - FEBRILE NEUTROPENIA [None]
  - BODY TEMPERATURE INCREASED [None]
  - FATIGUE [None]
